FAERS Safety Report 21044480 (Version 1)
Quarter: 2022Q3

REPORT INFORMATION
  Report Type: Spontaneous
  Country: IL (occurrence: IL)
  Receive Date: 20220705
  Receipt Date: 20220705
  Transmission Date: 20221026
  Serious: Yes (Life-Threatening, Hospitalization)
  Sender: FDA-Public Use
  Company Number: IL-NOVARTISPH-NVSC2022IL152630

PATIENT
  Age: 39 Year
  Sex: Female

DRUGS (1)
  1. ZOFRAN [Suspect]
     Active Substance: ONDANSETRON HYDROCHLORIDE
     Indication: Product used for unknown indication
     Dosage: UNK
     Route: 041
     Dates: start: 20220408

REACTIONS (14)
  - Anaphylactic shock [Unknown]
  - Dyspnoea [Unknown]
  - Chest pain [Unknown]
  - Nasal congestion [Unknown]
  - Tracheal obstruction [Unknown]
  - Oxygen consumption decreased [Unknown]
  - Pulmonary oedema [Unknown]
  - Nasal pruritus [Unknown]
  - Middle ear effusion [Unknown]
  - Balance disorder [Unknown]
  - Dizziness [Recovering/Resolving]
  - Confusional state [Unknown]
  - Vomiting [Unknown]
  - Gait inability [Unknown]

NARRATIVE: CASE EVENT DATE: 20220408
